FAERS Safety Report 24778810 (Version 7)
Quarter: 2025Q3

REPORT INFORMATION
  Report Type: Report from Study
  Country: CA (occurrence: CA)
  Receive Date: 20241226
  Receipt Date: 20250829
  Transmission Date: 20251021
  Serious: Yes (Other)
  Sender: CSL BEHRING
  Company Number: CA-BEH-2024188822

PATIENT
  Age: 70 Year
  Sex: Male
  Weight: 72 kg

DRUGS (18)
  1. HIZENTRA [Suspect]
     Active Substance: HUMAN IMMUNOGLOBULIN G
     Indication: Secondary immunodeficiency
     Dosage: PRODUCT STRENGTH: 30G (DIVIDED IN TWO), QOW
     Route: 065
     Dates: start: 20241218
  2. HIZENTRA [Suspect]
     Active Substance: HUMAN IMMUNOGLOBULIN G
     Dosage: PRODUCT STRENGTH: 30G (DIVIDED IN TWO), QOW
     Route: 065
     Dates: start: 20241218
  3. HIZENTRA [Suspect]
     Active Substance: HUMAN IMMUNOGLOBULIN G
     Dosage: PRODUCT STRENGTH: 30G, QOW
     Route: 065
     Dates: start: 20241218
  4. HIZENTRA [Suspect]
     Active Substance: HUMAN IMMUNOGLOBULIN G
     Route: 065
     Dates: start: 20241230
  5. HIZENTRA [Suspect]
     Active Substance: HUMAN IMMUNOGLOBULIN G
     Route: 065
     Dates: start: 20241231
  6. HIZENTRA [Suspect]
     Active Substance: HUMAN IMMUNOGLOBULIN G
     Dosage: 30 G, QOW
     Route: 058
     Dates: start: 20241218
  7. AMLODIPINE [Concomitant]
     Active Substance: AMLODIPINE BESYLATE
  8. HYDROCHLOROTHIAZIDE [Concomitant]
     Active Substance: HYDROCHLOROTHIAZIDE
  9. SULFAMETHOXAZOLE\TRIMETHOPRIM [Concomitant]
     Active Substance: SULFAMETHOXAZOLE\TRIMETHOPRIM
  10. DEXILANT [Concomitant]
     Active Substance: DEXLANSOPRAZOLE
  11. CALCIUM [Concomitant]
     Active Substance: CALCIUM
  12. VITAMIN D NOS [Concomitant]
     Active Substance: CHOLECALCIFEROL\ERGOCALCIFEROL
  13. VITAMIN B12 [Concomitant]
     Active Substance: CYANOCOBALAMIN
  14. URSODIOL [Concomitant]
     Active Substance: URSODIOL
  15. RAMIPRIL [Concomitant]
     Active Substance: RAMIPRIL
  16. PREGABALIN [Concomitant]
     Active Substance: PREGABALIN
  17. VALACYCLOVIR [Concomitant]
     Active Substance: VALACYCLOVIR HYDROCHLORIDE
  18. TECVAYLI [Concomitant]
     Active Substance: TECLISTAMAB-CQYV
     Dosage: UNK, QW

REACTIONS (16)
  - Injection site pruritus [Unknown]
  - Infusion site swelling [Unknown]
  - Infusion site discolouration [Unknown]
  - Infusion site warmth [Unknown]
  - Wrong technique in product usage process [Unknown]
  - Wrong dose [Unknown]
  - Infusion site bruising [Unknown]
  - Sensitive skin [Unknown]
  - Neoplasm malignant [Unknown]
  - Chills [Unknown]
  - Chills [Unknown]
  - Fatigue [Unknown]
  - Infusion site swelling [Unknown]
  - Infusion site discolouration [Unknown]
  - Injection site swelling [Unknown]
  - Infusion site haemorrhage [Unknown]

NARRATIVE: CASE EVENT DATE: 20241218
